FAERS Safety Report 4610160-5 (Version None)
Quarter: 2005Q1

REPORT INFORMATION
  Report Type: 
  Country: None (occurrence: None)
  Receive Date: 20050316
  Receipt Date: 20050303
  Transmission Date: 20050727
  Serious: Yes (Other)
  Sender: FDA-Public Use
  Company Number: CH-GLAXOSMITHKLINE-B0374417A

PATIENT
  Age: 74 Year
  Sex: Male

DRUGS (8)
  1. DERMOVATE [Suspect]
     Indication: PSORIASIS
     Route: 061
  2. CHINESE HERBAL MEDICINE [Suspect]
     Indication: HEADACHE
     Route: 048
     Dates: start: 20030101, end: 20041228
  3. ADVANTAN [Suspect]
     Indication: PSORIASIS
     Route: 061
  4. IRBESARTAN [Suspect]
     Indication: ESSENTIAL HYPERTENSION
     Dosage: 150MG PER DAY
     Route: 048
     Dates: start: 20040505, end: 20040607
  5. DILZEM [Concomitant]
     Indication: ESSENTIAL HYPERTENSION
     Dosage: 180MG PER DAY
     Route: 048
  6. PYRALVEX [Concomitant]
     Route: 061
  7. VALIUM [Concomitant]
     Route: 048
  8. NEBILET [Concomitant]

REACTIONS (15)
  - ABDOMINAL DISTENSION [None]
  - ASTHENIA [None]
  - BLOOD CORTISOL DECREASED [None]
  - BLOOD PRESSURE INCREASED [None]
  - CUSHING'S SYNDROME [None]
  - ERYTHEMA [None]
  - GLAUCOMA [None]
  - HYPERTENSION [None]
  - INTRAOCULAR PRESSURE INCREASED [None]
  - NEUTROPHILIA [None]
  - OEDEMA PERIPHERAL [None]
  - PIGMENTATION DISORDER [None]
  - PSORIASIS [None]
  - VERTIGO [None]
  - WEIGHT INCREASED [None]
